FAERS Safety Report 8890755 (Version 1)
Quarter: 2012Q4

REPORT INFORMATION
  Report Type: 
  Country: FR (occurrence: FR)
  Receive Date: 20121107
  Receipt Date: 20121107
  Transmission Date: 20130627
  Serious: Yes (Other)
  Sender: FDA-Public Use
  Company Number: FR-ROCHE-1152619

PATIENT
  Sex: Female

DRUGS (4)
  1. PEGASYS [Suspect]
     Indication: PRODUCT USED FOR UNKNOWN INDICATION
     Route: 065
     Dates: start: 2010
  2. PEGASYS [Suspect]
     Route: 065
     Dates: start: 2011
  3. COPEGUS [Suspect]
     Indication: PRODUCT USED FOR UNKNOWN INDICATION
     Route: 065
     Dates: start: 2010
  4. COPEGUS [Suspect]
     Route: 065
     Dates: start: 2010

REACTIONS (3)
  - Paresis [Recovering/Resolving]
  - Altered state of consciousness [Recovered/Resolved]
  - Rhabdomyolysis [Recovering/Resolving]
